FAERS Safety Report 5346875-3 (Version None)
Quarter: 2007Q2

REPORT INFORMATION
  Report Type: 
  Country: None (occurrence: None)
  Receive Date: 20070604
  Receipt Date: 20070420
  Transmission Date: 20071010
  Serious: Yes (Death)
  Sender: FDA-Public Use
  Company Number: 2007US000888

PATIENT
  Age: 71 Year
  Sex: Female
  Weight: 87.07 kg

DRUGS (2)
  1. AMEVIVE [Suspect]
     Indication: PSORIASIS
     Dates: start: 20040601
  2. INSULIN              (INSULIN HUMAN) [Concomitant]

REACTIONS (1)
  - DEATH [None]
